FAERS Safety Report 5748235-X (Version None)
Quarter: 2008Q2

REPORT INFORMATION
  Report Type: 
  Country: None (occurrence: None)
  Receive Date: 20080523
  Receipt Date: 20080513
  Transmission Date: 20081010
  Serious: Yes (Death)
  Sender: FDA-Public Use
  Company Number: ES-PFIZER INC-2007009121

PATIENT
  Sex: Male

DRUGS (3)
  1. SU-011,248 [Suspect]
     Indication: METASTATIC RENAL CELL CARCINOMA
     Route: 048
     Dates: start: 20060824, end: 20061219
  2. NIMODIPINE [Concomitant]
     Route: 048
  3. LOSARTAN POTASSIUM [Concomitant]
     Route: 048

REACTIONS (1)
  - PNEUMONIA [None]
